FAERS Safety Report 6547039-8 (Version None)
Quarter: 2010Q1

REPORT INFORMATION
  Report Type: 
  Country: None (occurrence: None)
  Receive Date: 20100122
  Receipt Date: 20100118
  Transmission Date: 20100710
  Serious: Yes (Hospitalization)
  Sender: FDA-Public Use
  Company Number: US-BRISTOL-MYERS SQUIBB COMPANY-14940308

PATIENT
  Age: 59 Year
  Sex: Male
  Weight: 85 kg

DRUGS (14)
  1. ERBITUX [Suspect]
     Indication: NON-SMALL CELL LUNG CANCER
     Dates: start: 20100111, end: 20100111
  2. ASPIRIN [Concomitant]
  3. CRESTOR [Concomitant]
  4. DECADRON [Concomitant]
  5. OXYCODONE HCL AND ACETAMINOPHEN [Concomitant]
  6. KYTRIL [Concomitant]
  7. LORAZEPAM [Concomitant]
  8. LOVAZA [Concomitant]
  9. MEGESTROL ACETATE [Concomitant]
  10. METOPROLOL [Concomitant]
  11. MS CONTIN [Concomitant]
  12. NAPROXEN [Concomitant]
  13. NEXIUM [Concomitant]
  14. ONDANSETRON [Concomitant]

REACTIONS (6)
  - ABDOMINAL PAIN [None]
  - DEHYDRATION [None]
  - HYPOTENSION [None]
  - NAUSEA [None]
  - VOMITING [None]
  - WEIGHT DECREASED [None]
